FAERS Safety Report 4491074-0 (Version None)
Quarter: 2004Q4

REPORT INFORMATION
  Report Type: 
  Country: None (occurrence: None)
  Receive Date: 20041102
  Receipt Date: 20041011
  Transmission Date: 20050328
  Serious: Yes (Hospitalization)
  Sender: FDA-Public Use
  Company Number: US-MERCK-0410USA01683

PATIENT
  Age: 84 Year
  Sex: Female

DRUGS (3)
  1. VIOXX [Suspect]
     Route: 048
  2. VIOXX [Suspect]
     Route: 048
  3. COZAAR [Concomitant]
     Route: 048

REACTIONS (2)
  - JOINT SWELLING [None]
  - PULMONARY EMBOLISM [None]
